FAERS Safety Report 18994223 (Version 1)
Quarter: 2021Q1

REPORT INFORMATION
  Report Type: Report from Study
  Country: DE (occurrence: DE)
  Receive Date: 20210310
  Receipt Date: 20210310
  Transmission Date: 20210420
  Serious: Yes (Other)
  Sender: FDA-Public Use
  Company Number: DE-PFIZER INC-2020223272

PATIENT
  Age: 32 Year
  Sex: Female

DRUGS (17)
  1. OCREVUS [Suspect]
     Active Substance: OCRELIZUMAB
     Dosage: UNK
     Route: 042
     Dates: start: 20191022
  2. DRONABINOL. [Concomitant]
     Active Substance: DRONABINOL
     Dosage: FREQ:.25 D;
     Route: 065
  3. SATIVEX [Concomitant]
     Active Substance: NABIXIMOLS
     Dosage: UNK
  4. MIRTAZAPIN [Concomitant]
     Active Substance: MIRTAZAPINE
     Indication: NEURALGIA
     Dosage: 7.5 MG, 1X/DAY
  5. AQUALIBRA [Concomitant]
     Dosage: UNK
  6. LYRICA [Suspect]
     Active Substance: PREGABALIN
     Indication: PRODUCT USED FOR UNKNOWN INDICATION
     Dosage: FREQ:.25 D;
     Route: 065
  7. OCREVUS [Suspect]
     Active Substance: OCRELIZUMAB
     Dosage: UNK
     Dates: start: 20201020
  8. SIMPLEX [PASSIFLORA INCARNATA;STRYCHNOS IGNATII;VALERIANA OFFICINALIS] [Concomitant]
     Dosage: UNK
  9. LYRICA [Suspect]
     Active Substance: PREGABALIN
     Indication: PRODUCT USED FOR UNKNOWN INDICATION
     Dosage: 25 MG, 4X/DAY
  10. OCREVUS [Suspect]
     Active Substance: OCRELIZUMAB
     Dosage: SUBSEQUENT INFUSIONS: 22/OCT/2019, 20/OCT/2020
     Route: 042
     Dates: start: 20190410
  11. PANTOZOL [Concomitant]
     Active Substance: PANTOPRAZOLE SODIUM
     Dosage: UNK, AS NEEDED
  12. DRONABINOL. [Concomitant]
     Active Substance: DRONABINOL
     Indication: PRODUCT USED FOR UNKNOWN INDICATION
     Dosage: 4 DROP, 4X/DAY
  13. OCREVUS [Suspect]
     Active Substance: OCRELIZUMAB
     Indication: RELAPSING-REMITTING MULTIPLE SCLEROSIS
     Dosage: 300 MG, 2X/WEEK
     Route: 042
     Dates: start: 20181012
  14. OCREVUS [Suspect]
     Active Substance: OCRELIZUMAB
     Dosage: 300 MG
     Route: 042
     Dates: start: 20181026
  15. FAMPYRA [Concomitant]
     Active Substance: DALFAMPRIDINE
     Dosage: AS REQUIRED
  16. OCREVUS [Suspect]
     Active Substance: OCRELIZUMAB
     Dosage: FREQ:2 WK;
     Route: 042
     Dates: start: 20181012
  17. PANTOZOL [Concomitant]
     Active Substance: PANTOPRAZOLE SODIUM

REACTIONS (27)
  - Fatigue [Recovered/Resolved]
  - Menstrual disorder [Recovered/Resolved]
  - Heart rate increased [Recovered/Resolved]
  - Fatigue [Recovering/Resolving]
  - Nausea [Recovered/Resolved]
  - Body temperature increased [Recovered/Resolved]
  - Gastrointestinal infection [Recovered/Resolved]
  - Nasopharyngitis [Recovered/Resolved]
  - Multiple sclerosis [Recovered/Resolved]
  - Toxicity to various agents [Recovered/Resolved]
  - Blood pressure decreased [Recovered/Resolved]
  - Condition aggravated [Not Recovered/Not Resolved]
  - Urinary tract infection [Recovered/Resolved]
  - Sensory disturbance [Recovered/Resolved]
  - Gastrointestinal hypermotility [Recovered/Resolved]
  - Pain [Not Recovered/Not Resolved]
  - Menorrhagia [Not Recovered/Not Resolved]
  - Oral mucosal erythema [Recovered/Resolved]
  - Ataxia [Recovered/Resolved]
  - Headache [Recovered/Resolved]
  - Leukopenia [Not Recovered/Not Resolved]
  - Iron deficiency [Recovered/Resolved]
  - Muscle spasticity [Not Recovered/Not Resolved]
  - Asthenia [Recovered/Resolved]
  - Neuralgia [Not Recovered/Not Resolved]
  - Oral pain [Recovered/Resolved]
  - Body temperature increased [Recovered/Resolved]

NARRATIVE: CASE EVENT DATE: 20181012
